FAERS Safety Report 11975913 (Version 3)
Quarter: 2016Q2

REPORT INFORMATION
  Report Type: Spontaneous
  Country: CA (occurrence: CA)
  Receive Date: 20160129
  Receipt Date: 20160526
  Transmission Date: 20160815
  Serious: Yes (Death, Hospitalization, Other)
  Sender: FDA-Public Use
  Company Number: CA-009507513-1601CAN009636

PATIENT
  Age: 69 Year
  Sex: Male
  Weight: 99 kg

DRUGS (17)
  1. METOCLOPRAMIDE. [Concomitant]
     Active Substance: METOCLOPRAMIDE
     Dosage: UNK, PRN
  2. ZOPICLONE [Concomitant]
     Active Substance: ZOPICLONE
     Dosage: UNK, PRN
  3. HYDROMORPHONE IR [Concomitant]
     Dosage: 6 MG, 2-4H PRN, OF WHICH HE WAS TAKING 1 BREAKTHROUGH PER DAY
  4. ACETAMINOPHEN. [Concomitant]
     Active Substance: ACETAMINOPHEN
     Dosage: UNK, PRN
  5. POTASSIUM CHLORIDE. [Concomitant]
     Active Substance: POTASSIUM CHLORIDE
     Dosage: 1200MG, BID
  6. DIMENHYDRINATE. [Concomitant]
     Active Substance: DIMENHYDRINATE
     Dosage: UNK, PRN
  7. AMLODIPINE [Concomitant]
     Active Substance: AMLODIPINE BESYLATE
     Dosage: 7.5 MG, DAILY
  8. DALTEPARIN [Concomitant]
     Active Substance: DALTEPARIN
     Dosage: 12,500 UNITS SUBCUT DAILY
  9. WARFARIN [Concomitant]
     Active Substance: WARFARIN
  10. RANITIDINE. [Concomitant]
     Active Substance: RANITIDINE
     Dosage: UNK, PRN
  11. SALBUTAMOL [Concomitant]
     Active Substance: ALBUTEROL
     Dosage: UNK, PRN
  12. IPRATROPIUM [Concomitant]
     Active Substance: IPRATROPIUM
     Dosage: UNK, PRN
  13. NYSTATIN. [Concomitant]
     Active Substance: NYSTATIN
     Dosage: 500.000 UNITS QID
  14. KEYTRUDA [Suspect]
     Active Substance: PEMBROLIZUMAB
     Indication: MALIGNANT MELANOMA
     Dosage: 2MG/KG, Q3W
     Route: 042
     Dates: start: 20151202, end: 20151222
  15. HYDROMORPHONE SLOW RELEASE [Concomitant]
     Dosage: 30 MG, BID
  16. SOTALOL. [Concomitant]
     Active Substance: SOTALOL
     Dosage: 80 MG, BID
  17. LACTULOSE. [Concomitant]
     Active Substance: LACTULOSE
     Indication: PROPHYLAXIS
     Dosage: 30 ML, DAILY

REACTIONS (15)
  - Asthenia [Unknown]
  - Delirium [Recovered/Resolved]
  - Emotional distress [Unknown]
  - Malignant neoplasm progression [Fatal]
  - Urosepsis [Recovered/Resolved]
  - Deep vein thrombosis [Not Recovered/Not Resolved]
  - Hydroureter [Unknown]
  - Anxiety [Unknown]
  - Weight fluctuation [Unknown]
  - Abdominal pain [Recovering/Resolving]
  - Early satiety [Unknown]
  - Cognitive disorder [Unknown]
  - Calcium ionised increased [Unknown]
  - Decreased appetite [Recovering/Resolving]
  - Hydronephrosis [Unknown]

NARRATIVE: CASE EVENT DATE: 20151228
